FAERS Safety Report 16638480 (Version 1)
Quarter: 2019Q3

REPORT INFORMATION
  Report Type: Spontaneous
  Country: US (occurrence: US)
  Receive Date: 20190726
  Receipt Date: 20190726
  Transmission Date: 20191004
  Serious: No
  Sender: FDA-Public Use
  Company Number: US-PFIZER INC-2019318290

PATIENT
  Age: 45 Year
  Sex: Female
  Weight: 73.48 kg

DRUGS (2)
  1. LYRICA CR [Suspect]
     Active Substance: PREGABALIN
     Indication: NEUROPATHY PERIPHERAL
     Dosage: 165 MG, DAILY
     Route: 048
  2. LYRICA CR [Suspect]
     Active Substance: PREGABALIN
     Indication: FIBROMYALGIA
     Dosage: UNK [TAKING THEM IN HALF]

REACTIONS (2)
  - Condition aggravated [Unknown]
  - Wrong technique in product usage process [Unknown]
